FAERS Safety Report 7384294-9 (Version None)
Quarter: 2011Q1

REPORT INFORMATION
  Report Type: 
  Country: None (occurrence: None)
  Receive Date: 20110322
  Receipt Date: 20110304
  Transmission Date: 20110831
  Serious: Yes (Hospitalization)
  Sender: FDA-Public Use
  Company Number: JPI-P-014146

PATIENT
  Age: 53 Year
  Sex: Male

DRUGS (11)
  1. ASPIRIN [Concomitant]
  2. ATORVASTATIN [Concomitant]
  3. AMLODIPINE [Concomitant]
  4. ALLOPURINOL [Concomitant]
  5. XYREM [Suspect]
     Indication: CATAPLEXY
     Dosage: 2.25 GM FIRST DOSE/2.5 GM SECOND DOSE) 6 GM (6 GM 1 IN 1 D), ORAL
     Route: 048
     Dates: start: 20090522
  6. XYREM [Suspect]
     Indication: CATAPLEXY
     Dosage: 2.25 GM FIRST DOSE/2.5 GM SECOND DOSE) 6 GM (6 GM 1 IN 1 D), ORAL
     Route: 048
     Dates: start: 20110209
  7. FLUOXETINE [Concomitant]
  8. WARFARIN [Concomitant]
  9. ATORVASTATIN CALCIUM [Concomitant]
  10. LEVOTHYROXINE [Concomitant]
  11. METOPROLOL TARTRATE [Concomitant]

REACTIONS (4)
  - SOMNAMBULISM [None]
  - CEREBROVASCULAR ACCIDENT [None]
  - OCULAR ISCHAEMIC SYNDROME [None]
  - FALL [None]
